FAERS Safety Report 12088589 (Version 1)
Quarter: 2016Q1

REPORT INFORMATION
  Report Type: Spontaneous
  Country: None (occurrence: None)
  Receive Date: 20160216
  Receipt Date: 20160216
  Transmission Date: 20160526
  Serious: Yes (Life-Threatening)
  Sender: FDA-Public Use
  Company Number: None

PATIENT
  Age: 42 Year
  Sex: Male
  Weight: 72.58 kg

DRUGS (2)
  1. MAALOX ANTACID [Suspect]
     Active Substance: ALUMINUM HYDROXIDE\DIMETHICONE\MAGNESIUM HYDROXIDE
     Indication: ABDOMINAL DISCOMFORT
     Dosage: 1 TABLET
     Route: 048
     Dates: start: 20160215, end: 20160216
  2. CHERRY EXTRACT [Concomitant]
     Active Substance: CHERRY EXTRACT

REACTIONS (8)
  - Fall [None]
  - Cardiac disorder [None]
  - Apparent death [None]
  - Constipation [None]
  - Tremor [None]
  - Headache [None]
  - Dyspnoea [None]
  - Abdominal discomfort [None]

NARRATIVE: CASE EVENT DATE: 20160216
